FAERS Safety Report 9743073 (Version 1)
Quarter: 2013Q4

REPORT INFORMATION
  Report Type: Spontaneous
  Country: BR (occurrence: BR)
  Receive Date: 20131210
  Receipt Date: 20131210
  Transmission Date: 20140711
  Serious: Yes (Hospitalization)
  Sender: FDA-Public Use
  Company Number: BR-GLAXOSMITHKLINE-A1052699A

PATIENT
  Sex: Female

DRUGS (1)
  1. NIQUITIN PATCH [Suspect]
     Route: 062
     Dates: start: 20131202

REACTIONS (3)
  - Face oedema [Recovered/Resolved]
  - Lip blister [Recovered/Resolved]
  - Hypersensitivity [Recovered/Resolved]
